FAERS Safety Report 7626717-3 (Version None)
Quarter: 2011Q3

REPORT INFORMATION
  Report Type: 
  Country: None (occurrence: None)
  Receive Date: 20110721
  Receipt Date: 20100907
  Transmission Date: 20111222
  Serious: No
  Sender: FDA-Public Use
  Company Number: US-MYLANLABS-2010S1016423

PATIENT
  Age: 38 Year
  Sex: Female

DRUGS (4)
  1. ONDANSETRON [Suspect]
     Indication: VOMITING
     Route: 048
     Dates: start: 20100706, end: 20100710
  2. METHOTREXATE [Concomitant]
  3. HYDROCORTISONE [Concomitant]
  4. ONDANSETRON [Suspect]
     Indication: NAUSEA
     Route: 048
     Dates: start: 20100706, end: 20100710

REACTIONS (7)
  - VOMITING [None]
  - HEADACHE [None]
  - FATIGUE [None]
  - NAUSEA [None]
  - DIZZINESS [None]
  - DYSPNOEA [None]
  - DRUG INEFFECTIVE [None]
